FAERS Safety Report 7245829 (Version 10)
Quarter: 2014Q1

REPORT INFORMATION
  Report Type: Spontaneous
  Country: US (occurrence: US)
  Receive Date: 20100114
  Receipt Date: 20140207
  Transmission Date: 20141002
  Serious: Yes (Hospitalization, Other)
  Sender: FDA-Public Use
  Company Number: PHEH2010US00476

PATIENT
  Sex: Female
  Weight: 77.1 kg

DRUGS (18)
  1. ZOMETA [Suspect]
     Indication: METASTASES TO BONE
     Dosage: 4 MG, QMO
     Route: 042
     Dates: start: 200304, end: 2007
  2. ZOMETA [Suspect]
     Indication: BREAST CANCER METASTATIC
  3. VITAMIN B12 [Concomitant]
  4. DECADRON [Concomitant]
     Dosage: 10 MG,
     Route: 042
  5. SOLU-MEDROL [Concomitant]
  6. TAMOXIFEN [Concomitant]
     Dosage: 20 MG, QD
     Route: 048
  7. LUPRON [Concomitant]
  8. CELEBREX [Concomitant]
  9. VICODIN [Concomitant]
  10. COLACE [Concomitant]
  11. MYLANTA [Concomitant]
  12. ATIVAN [Concomitant]
  13. ALBUTEROL [Concomitant]
  14. ATROVENT [Concomitant]
  15. PREDNISONE [Concomitant]
  16. CELEXA [Concomitant]
  17. PROTONIX ^PHARMACIA^ [Concomitant]
  18. RESTORIL [Concomitant]

REACTIONS (63)
  - Physical disability [Unknown]
  - Pain [Unknown]
  - Anxiety [Unknown]
  - Decreased interest [Unknown]
  - Diarrhoea [Unknown]
  - Vomiting [Unknown]
  - Dehydration [Unknown]
  - Lethargy [Unknown]
  - Hypokalaemia [Unknown]
  - Venous thrombosis [Unknown]
  - Gastroenteritis viral [Unknown]
  - Compression fracture [Unknown]
  - Headache [Unknown]
  - Hot flush [Unknown]
  - Sexual dysfunction [Unknown]
  - Weight decreased [Unknown]
  - Exposed bone in jaw [Unknown]
  - Pain in jaw [Recovering/Resolving]
  - Swelling [Unknown]
  - Erythema [Unknown]
  - Pyrexia [Recovered/Resolved]
  - Spinal osteoarthritis [Unknown]
  - Arthropathy [Not Recovered/Not Resolved]
  - Osteoarthritis [Unknown]
  - Lymphadenopathy [Unknown]
  - Osteomyelitis [Unknown]
  - Loose tooth [Unknown]
  - Radiculopathy [Unknown]
  - Neuromyopathy [Unknown]
  - Balance disorder [Unknown]
  - Poor peripheral circulation [Unknown]
  - Hypoaesthesia [Unknown]
  - Spinal column stenosis [Unknown]
  - Contusion [Unknown]
  - Laceration [Unknown]
  - Leukocytosis [Unknown]
  - Electrolyte imbalance [Unknown]
  - Polycythaemia [Unknown]
  - Hiatus hernia [Unknown]
  - Periodontal disease [Unknown]
  - Dental caries [Unknown]
  - Chronic obstructive pulmonary disease [Unknown]
  - Cellulitis [Unknown]
  - Hepatic lesion [Unknown]
  - Adnexa uteri mass [Unknown]
  - Gingival bleeding [Unknown]
  - Bruxism [Unknown]
  - Sensitivity of teeth [Unknown]
  - Osteoradionecrosis [Unknown]
  - Tooth loss [Unknown]
  - Ovarian mass [Unknown]
  - Atelectasis [Unknown]
  - Joint injury [Unknown]
  - Pathological fracture [Unknown]
  - Vertebral foraminal stenosis [Unknown]
  - Dyspnoea [Unknown]
  - Toothache [Unknown]
  - Soft tissue mass [Unknown]
  - Abdominal discomfort [Unknown]
  - Bone disorder [Unknown]
  - Tooth impacted [Unknown]
  - Osteonecrosis of jaw [Unknown]
  - General physical health deterioration [Unknown]
